FAERS Safety Report 23689517 (Version 1)
Quarter: 2024Q1

REPORT INFORMATION
  Report Type: Spontaneous
  Country: PE (occurrence: PE)
  Receive Date: 20240331
  Receipt Date: 20240331
  Transmission Date: 20240410
  Serious: Yes (Hospitalization, Other)
  Sender: FDA-Public Use
  Company Number: PE-STERISCIENCE B.V.-2024-ST-000346

PATIENT
  Age: 8 Year
  Sex: Male

DRUGS (11)
  1. GANCICLOVIR SODIUM [Suspect]
     Active Substance: GANCICLOVIR SODIUM
     Indication: Cytomegalovirus infection
     Dosage: 5 MILLIGRAM/KILOGRAM, Q12H (BID)
     Route: 042
  2. GANCICLOVIR SODIUM [Suspect]
     Active Substance: GANCICLOVIR SODIUM
     Dosage: 5 MILLIGRAM/KILOGRAM, Q12H (BID)
     Route: 042
  3. GANCICLOVIR SODIUM [Suspect]
     Active Substance: GANCICLOVIR SODIUM
     Dosage: 5 MILLIGRAM/KILOGRAM, Q12H (BID)
     Route: 042
  4. FOSCARNET [Suspect]
     Active Substance: FOSCARNET
     Indication: Cytomegalovirus infection
     Dosage: 180 MILLIGRAM/KILOGRAM, QD
     Route: 065
  5. FOSCARNET [Suspect]
     Active Substance: FOSCARNET
     Dosage: 180 MILLIGRAM/KILOGRAM, QD
     Route: 065
  6. FOSCARNET [Suspect]
     Active Substance: FOSCARNET
     Dosage: 180 MILLIGRAM/KILOGRAM, QD
     Route: 065
  7. FOSCARNET [Suspect]
     Active Substance: FOSCARNET
     Dosage: 180 MILLIGRAM/KILOGRAM, QD
     Route: 065
  8. CIDOFOVIR [Suspect]
     Active Substance: CIDOFOVIR
     Indication: Cytomegalovirus infection
     Dosage: 5 MILLIGRAM/KILOGRAM, QW
     Route: 065
  9. CIDOFOVIR [Suspect]
     Active Substance: CIDOFOVIR
     Dosage: 5 MILLIGRAM/KILOGRAM, QW
     Route: 065
  10. AMPHOTERICIN B [Concomitant]
     Active Substance: AMPHOTERICIN B
     Indication: Cytomegalovirus infection
     Dosage: UNK
     Route: 065
  11. VORICONAZOLE [Concomitant]
     Active Substance: VORICONAZOLE
     Indication: Cytomegalovirus infection
     Dosage: UNK
     Route: 065

REACTIONS (1)
  - Drug ineffective [Unknown]
